FAERS Safety Report 5211056-0 (Version None)
Quarter: 2006Q4

REPORT INFORMATION
  Report Type: 
  Country: None (occurrence: None)
  Receive Date: 20061114
  Receipt Date: 20060809
  Transmission Date: 20070319
  Serious: No
  Sender: FDA-Public Use
  Company Number: S06-USA-03164-01

PATIENT
  Age: 82 Year
  Sex: Female

DRUGS (13)
  1. NAMENDA [Suspect]
     Indication: MEMORY IMPAIRMENT
     Dosage: 10MG BID PO
     Route: 048
     Dates: start: 20060801
  2. NAMENDA [Suspect]
     Indication: MEMORY IMPAIRMENT
     Dosage: 5 MG QD PO
     Route: 048
     Dates: start: 20060701, end: 20060701
  3. SYNTHROID [Concomitant]
  4. HYDROCHLOROTHIAZIDE [Concomitant]
  5. ATENOLOL [Concomitant]
  6. NAMENDA [Suspect]
     Indication: MEMORY IMPAIRMENT
     Dosage: 5 MG BID PO
     Route: 048
     Dates: start: 20060701, end: 20060701
  7. NAMENDA [Suspect]
     Indication: MEMORY IMPAIRMENT
     Dosage: 15 MG QD PO
     Route: 048
     Dates: start: 20060701, end: 20060801
  8. CARTIA XT [Concomitant]
  9. NEXIUM [Concomitant]
  10. WELLBUTRIN XL [Concomitant]
  11. KLONOPIN [Concomitant]
  12. CALCIUM [Concomitant]
  13. MAGNESIUM [Concomitant]

REACTIONS (6)
  - AGITATION [None]
  - ANXIETY [None]
  - DIZZINESS [None]
  - FEELING JITTERY [None]
  - GAIT DISTURBANCE [None]
  - MALAISE [None]
